FAERS Safety Report 8425024-9 (Version None)
Quarter: 2012Q2

REPORT INFORMATION
  Report Type: 
  Country: None (occurrence: None)
  Receive Date: 20120611
  Receipt Date: 20120601
  Transmission Date: 20120825
  Serious: Yes (Other)
  Sender: FDA-Public Use
  Company Number: US-ELI_LILLY_AND_COMPANY-US201206001468

PATIENT
  Sex: Male

DRUGS (2)
  1. LANTUS [Concomitant]
  2. HUMALOG [Suspect]
     Dosage: UNK, UNKNOWN

REACTIONS (4)
  - CONVULSION [None]
  - CARDIAC VALVE DISEASE [None]
  - CARDIAC DISORDER [None]
  - CATHETERISATION CARDIAC [None]
